FAERS Safety Report 5038179-3 (Version None)
Quarter: 2006Q2

REPORT INFORMATION
  Report Type: 
  Country: None (occurrence: None)
  Receive Date: 20060623
  Receipt Date: 20060609
  Transmission Date: 20061013
  Serious: Yes (Death, Hospitalization, Other)
  Sender: FDA-Public Use
  Company Number: 2005129638

PATIENT
  Age: 84 Year
  Sex: Female

DRUGS (2)
  1. CELEBREX [Suspect]
     Indication: ARTHRITIS
     Dosage: 30 MG (1 IN 1 D)
     Dates: start: 20000101, end: 20031231
  2. BEXTRA [Suspect]
     Indication: ARTHRITIS
     Dosage: 30 MG (1 IN 1 D)
     Dates: start: 20031007, end: 20040501

REACTIONS (3)
  - CARDIAC FAILURE CONGESTIVE [None]
  - CARDIO-RESPIRATORY ARREST [None]
  - MYOCARDIAL INFARCTION [None]
